FAERS Safety Report 5650764-4 (Version None)
Quarter: 2008Q1

REPORT INFORMATION
  Report Type: 
  Country: None (occurrence: None)
  Receive Date: 20080305
  Receipt Date: 20080225
  Transmission Date: 20080703
  Serious: Yes (Hospitalization, Other)
  Sender: FDA-Public Use
  Company Number: PHRM2008FR00940

PATIENT
  Age: 19 Year
  Sex: Male

DRUGS (4)
  1. DESFERAL [Suspect]
     Indication: HAEMOCHROMATOSIS
     Dosage: 3 INFUSIONS WITHIN 7DAYS
     Route: 042
     Dates: start: 20071204, end: 20071210
  2. NOXAFIL [Suspect]
     Dosage: 400 MG, BID
     Route: 048
     Dates: start: 20071107
  3. NEUPOGEN [Suspect]
     Indication: PANCYTOPENIA
     Route: 058
     Dates: start: 20071026
  4. VISTIDE [Suspect]
     Indication: ADENOVIRUS INFECTION
     Dosage: 1 MG/KG, QW3
     Route: 042
     Dates: start: 20071130

REACTIONS (8)
  - ALLOGENIC BONE MARROW TRANSPLANTATION THERAPY [None]
  - CREATININE RENAL CLEARANCE DECREASED [None]
  - GASTROINTESTINAL DISORDER [None]
  - HAEMOGLOBIN DECREASED [None]
  - MITRAL VALVE INCOMPETENCE [None]
  - PLATELET COUNT DECREASED [None]
  - PULMONARY HYPERTENSION [None]
  - WHITE BLOOD CELL COUNT DECREASED [None]
